FAERS Safety Report 10188288 (Version 1)
Quarter: 2014Q2

REPORT INFORMATION
  Report Type: Report from Study
  Country: MX (occurrence: MX)
  Receive Date: 20140522
  Receipt Date: 20140522
  Transmission Date: 20141212
  Serious: Yes (Other)
  Sender: FDA-Public Use
  Company Number: MX-ASTELLAS-2014EU005806

PATIENT
  Sex: 0

DRUGS (7)
  1. TACROLIMUS [Suspect]
     Indication: IMMUNOSUPPRESSION
     Dosage: 0.15 MG/KG, DAILY
     Route: 048
  2. TACROLIMUS [Suspect]
     Dosage: 0.18 MG/KG, DAILY
     Route: 065
  3. MYCOPHENOLATE MOFETIL [Suspect]
     Indication: IMMUNOSUPPRESSION
     Dosage: 2 G, DAILY
     Route: 065
  4. MYCOPHENOLATE MOFETIL [Suspect]
     Dosage: 2 G, DAILY
     Route: 048
  5. METHYLPREDNISOLONE [Suspect]
     Indication: IMMUNOSUPPRESSION
     Route: 042
  6. BASILIXIMAB [Suspect]
     Indication: IMMUNOSUPPRESSION
     Route: 065
  7. PREDNISONE [Suspect]
     Indication: IMMUNOSUPPRESSION
     Dosage: UNK UNK, UNKNOWN FREQ.
     Route: 065

REACTIONS (1)
  - Toxicity to various agents [Unknown]
